FAERS Safety Report 5760928-7 (Version None)
Quarter: 2008Q2

REPORT INFORMATION
  Report Type: 
  Country: None (occurrence: None)
  Receive Date: 20080606
  Receipt Date: 20080526
  Transmission Date: 20081010
  Serious: Yes (Life-Threatening, Hospitalization)
  Sender: FDA-Public Use
  Company Number: CL-ROCHE-566824

PATIENT
  Age: 60 Year
  Sex: Male

DRUGS (1)
  1. VESANOID [Suspect]
     Indication: ACUTE PROMYELOCYTIC LEUKAEMIA
     Route: 048
     Dates: start: 20080301

REACTIONS (4)
  - GENERALISED OEDEMA [None]
  - ILL-DEFINED DISORDER [None]
  - RENAL FAILURE ACUTE [None]
  - RETINOIC ACID SYNDROME [None]
